FAERS Safety Report 16307675 (Version 1)
Quarter: 2019Q2

REPORT INFORMATION
  Report Type: Spontaneous
  Country: GB (occurrence: GB)
  Receive Date: 20190514
  Receipt Date: 20190514
  Transmission Date: 20190711
  Serious: Yes (Other)
  Sender: FDA-Public Use
  Company Number: GB-AUROBINDO-AUR-APL-2019-025364

PATIENT

DRUGS (1)
  1. GABAPENTIN. [Suspect]
     Active Substance: GABAPENTIN
     Indication: PRODUCT USED FOR UNKNOWN INDICATION
     Dosage: UNK
     Route: 065

REACTIONS (11)
  - Dizziness [Unknown]
  - Insomnia [Unknown]
  - Abnormal behaviour [Unknown]
  - Amnesia [Unknown]
  - Anxiety [Unknown]
  - Depression [Unknown]
  - Diplopia [Unknown]
  - Memory impairment [Unknown]
  - Dementia [Unknown]
  - Coordination abnormal [Unknown]
  - Feeling abnormal [Unknown]
